FAERS Safety Report 23290958 (Version 3)
Quarter: 2025Q2

REPORT INFORMATION
  Report Type: Spontaneous
  Country: AU (occurrence: AU)
  Receive Date: 20231213
  Receipt Date: 20250611
  Transmission Date: 20250717
  Serious: No
  Sender: CELLTRION
  Company Number: AU-CELLTRION INC.-2023AU023758

PATIENT

DRUGS (1)
  1. INFLECTRA [Suspect]
     Active Substance: INFLIXIMAB-DYYB
     Indication: Crohn^s disease

REACTIONS (1)
  - Off label use [Unknown]
